FAERS Safety Report 21871099 (Version 2)
Quarter: 2023Q1

REPORT INFORMATION
  Report Type: Report from Study
  Country: UZ (occurrence: UZ)
  Receive Date: 20230117
  Receipt Date: 20230131
  Transmission Date: 20230417
  Serious: Yes (Death, Hospitalization, Other)
  Sender: FDA-Public Use
  Company Number: UZ-MYLANLABS-2023M1003318

PATIENT
  Age: 70 Year
  Sex: Female
  Weight: 96 kg

DRUGS (6)
  1. PRETOMANID [Suspect]
     Active Substance: PRETOMANID
     Indication: Pulmonary tuberculosis
     Dosage: UNK, (200)
     Route: 048
     Dates: start: 20221027, end: 20230104
  2. MOXIFLOXACIN [Suspect]
     Active Substance: MOXIFLOXACIN
     Indication: Product used for unknown indication
     Dosage: UNK, (400)
     Route: 048
     Dates: start: 20221027, end: 20230104
  3. BEDAQUILINE [Suspect]
     Active Substance: BEDAQUILINE
     Indication: Pulmonary tuberculosis
     Dosage: UNK, (400 GREATER THAN 200 3/7)
     Route: 048
     Dates: start: 20221027, end: 20230104
  4. LINEZOLID [Suspect]
     Active Substance: LINEZOLID
     Indication: Pulmonary tuberculosis
     Dosage: UNK, (600)
     Route: 048
     Dates: start: 20221027, end: 20230104
  5. METFORMIN HYDROCHLORIDE [Suspect]
     Active Substance: METFORMIN HYDROCHLORIDE
     Indication: Type 2 diabetes mellitus
     Dosage: UNK, (SEVERAL YEARS)
     Route: 048
  6. ENALAPRIL [Suspect]
     Active Substance: ENALAPRIL
     Indication: Hypertension
     Dosage: UNK, (SEVERAL YEARS)
     Route: 048

REACTIONS (13)
  - Death [Fatal]
  - Multiple organ dysfunction syndrome [Unknown]
  - Oliguria [Not Recovered/Not Resolved]
  - Supraventricular extrasystoles [Unknown]
  - Peripheral swelling [Unknown]
  - Dyspnoea [Unknown]
  - Hypovolaemia [Unknown]
  - Anaemia [Unknown]
  - Dry mouth [Not Recovered/Not Resolved]
  - Nausea [Not Recovered/Not Resolved]
  - Vomiting [Not Recovered/Not Resolved]
  - Headache [Not Recovered/Not Resolved]
  - Back pain [Not Recovered/Not Resolved]

NARRATIVE: CASE EVENT DATE: 20230101
